FAERS Safety Report 8066418-3 (Version None)
Quarter: 2012Q1

REPORT INFORMATION
  Report Type: 
  Country: None (occurrence: None)
  Receive Date: 20120124
  Receipt Date: 20120124
  Transmission Date: 20120608
  Serious: Yes (Hospitalization)
  Sender: FDA-Public Use
  Company Number: None

PATIENT
  Age: 33 Year
  Sex: Female
  Weight: 47.627 kg

DRUGS (1)
  1. LUPRON [Suspect]
     Indication: SENSATION OF PRESSURE
     Dosage: UNKNOWN
     Route: 042
     Dates: start: 19930315, end: 19930515

REACTIONS (16)
  - OSTEOARTHRITIS [None]
  - SJOGREN'S SYNDROME [None]
  - HYPERTHYROIDISM [None]
  - FIBROMYALGIA [None]
  - RHEUMATOID ARTHRITIS [None]
  - PROCEDURAL HAEMORRHAGE [None]
  - DIABETES MELLITUS [None]
  - ADDISON'S DISEASE [None]
  - UNEVALUABLE EVENT [None]
  - HEART RATE INCREASED [None]
  - WEIGHT DECREASED [None]
  - THYROID CANCER METASTATIC [None]
  - PAIN [None]
  - WHEELCHAIR USER [None]
  - NO THERAPEUTIC RESPONSE [None]
  - WALKING AID USER [None]
